FAERS Safety Report 24422111 (Version 1)
Quarter: 2024Q4

REPORT INFORMATION
  Report Type: Spontaneous
  Country: US (occurrence: US)
  Receive Date: 20241010
  Receipt Date: 20241010
  Transmission Date: 20250114
  Serious: No
  Sender: AMNEAL
  Company Number: US-AMNEAL PHARMACEUTICALS-2024-AMRX-02672

PATIENT
  Age: 34 Year
  Sex: Female

DRUGS (1)
  1. OFLOXACIN [Suspect]
     Active Substance: OFLOXACIN
     Indication: Product used for unknown indication
     Dosage: UNK
     Route: 065
     Dates: start: 20240618

REACTIONS (3)
  - Product dispensing error [Unknown]
  - Incorrect route of product administration [Unknown]
  - No adverse event [Unknown]

NARRATIVE: CASE EVENT DATE: 20240618
